APPROVED DRUG PRODUCT: DEFINITY
Active Ingredient: PERFLUTREN
Strength: 13.04MG/2ML (6.52MG/ML)
Dosage Form/Route: INJECTABLE;INTRAVENOUS
Application: N021064 | Product #001
Applicant: LANTHEUS MEDICAL IMAGING INC
Approved: Jul 31, 2001 | RLD: Yes | RS: Yes | Type: RX

PATENTS:
Patent 9789210 | Expires: Mar 16, 2037
Patent 10588988 | Expires: May 4, 2037
Patent 10583207 | Expires: Dec 28, 2035
Patent 10583208 | Expires: Mar 16, 2037
Patent 11925695 | Expires: Mar 16, 2037
Patent 11529431 | Expires: Mar 16, 2037
Patent 11857646 | Expires: Mar 16, 2037
Patent 11266750 | Expires: Mar 16, 2037
Patent 12161730 | Expires: Mar 16, 2037